FAERS Safety Report 9140637 (Version 1)
Quarter: 2013Q1

REPORT INFORMATION
  Report Type: Spontaneous
  Country: US (occurrence: US)
  Receive Date: 20130305
  Receipt Date: 20130305
  Transmission Date: 20140127
  Serious: Yes (Death)
  Sender: FDA-Public Use
  Company Number: US-GLAXOSMITHKLINE-A1004049A

PATIENT
  Age: 61 Year
  Sex: Female

DRUGS (7)
  1. TYKERB [Suspect]
     Indication: BREAST CANCER
     Dosage: 1250MG PER DAY
     Route: 048
     Dates: start: 20121020
  2. HERCEPTIN [Concomitant]
  3. ZOMETA [Concomitant]
  4. EXTRA STRENGTH TYLENOL [Concomitant]
  5. MULTIVITAMIN [Concomitant]
  6. VITAMIN D3 [Concomitant]
  7. CLARITIN [Concomitant]

REACTIONS (4)
  - Death [Fatal]
  - Diarrhoea [Not Recovered/Not Resolved]
  - Diarrhoea [Not Recovered/Not Resolved]
  - Dry skin [Not Recovered/Not Resolved]
